FAERS Safety Report 12411738 (Version 1)
Quarter: 2016Q2

REPORT INFORMATION
  Report Type: Spontaneous
  Country: RU (occurrence: RU)
  Receive Date: 20160527
  Receipt Date: 20160527
  Transmission Date: 20160815
  Serious: Yes (Hospitalization)
  Sender: FDA-Public Use
  Company Number: RU-ASTRAZENECA-2016SE55336

PATIENT
  Age: 66 Year
  Sex: Female

DRUGS (5)
  1. NOLIPREL (PERINDOPRIL+INDAPAMIDE) [Concomitant]
  2. METFORMIN [Concomitant]
     Active Substance: METFORMIN HYDROCHLORIDE
  3. L-THYROXIN (LEVOTHYROXINE SODIUM) [Concomitant]
  4. ROXERA [Concomitant]
  5. FORXIGA [Suspect]
     Active Substance: DAPAGLIFLOZIN
     Route: 048
     Dates: start: 20151229, end: 20160213

REACTIONS (2)
  - Blood pressure increased [Unknown]
  - Blood glucose abnormal [Unknown]
